FAERS Safety Report 19999867 (Version 1)
Quarter: 2021Q4

REPORT INFORMATION
  Report Type: Spontaneous
  Country: US (occurrence: US)
  Receive Date: 20211026
  Receipt Date: 20211026
  Transmission Date: 20220303
  Serious: No
  Sender: FDA-Public Use
  Company Number: US-CELGENE-USA-20211004873

PATIENT
  Sex: Male

DRUGS (1)
  1. POMALYST [Suspect]
     Active Substance: POMALIDOMIDE
     Indication: Plasma cell myeloma recurrent
     Dosage: 3 MILLIGRAM
     Route: 048
     Dates: start: 202008

REACTIONS (4)
  - Dizziness [Unknown]
  - Asthenia [Unknown]
  - Gastrointestinal motility disorder [Unknown]
  - Heart rate decreased [Unknown]
